FAERS Safety Report 7356161-8 (Version None)
Quarter: 2011Q1

REPORT INFORMATION
  Report Type: 
  Country: None (occurrence: None)
  Receive Date: 20110316
  Receipt Date: 20110309
  Transmission Date: 20110831
  Serious: Yes (Hospitalization)
  Sender: FDA-Public Use
  Company Number: US-ABBOTT-11P-163-0711060-00

PATIENT
  Sex: Female
  Weight: 107.14 kg

DRUGS (18)
  1. DEPAKOTE [Concomitant]
     Indication: MIGRAINE
  2. IBUPROFEN [Concomitant]
     Indication: PAIN
  3. PERCOCET [Concomitant]
     Indication: PAIN
  4. LYRICA [Concomitant]
     Indication: PAIN
  5. CALCIUM [Concomitant]
     Indication: MINERAL SUPPLEMENTATION
  6. LEVOTHYROXINE [Concomitant]
     Indication: HYPOTHYROIDISM
  7. DEPAKOTE [Concomitant]
     Indication: CONVULSION
  8. TOPAMAX [Concomitant]
     Indication: MIGRAINE
  9. SEROQUEL [Concomitant]
     Indication: DEPRESSION
  10. UNKNOWN OSTEOPROROSIS MEDICATION [Concomitant]
     Indication: OSTEOPOROSIS
  11. UNKNOWN HYPERTENSION PILL [Concomitant]
     Indication: HYPERTENSION
  12. IMURAN [Concomitant]
     Indication: CROHN'S DISEASE
  13. TYLENOL-500 [Concomitant]
     Indication: PAIN
  14. HUMIRA [Suspect]
     Indication: CROHN'S DISEASE
     Dates: start: 20100904, end: 20110225
  15. ATIVAN [Concomitant]
     Indication: ANXIETY
  16. NEXIUM [Concomitant]
     Indication: GASTROOESOPHAGEAL REFLUX DISEASE
  17. LEXAPRO [Concomitant]
     Indication: DEPRESSION
  18. UNKNOWN BLOOD PRESSURE MED WITH DIURETIC [Concomitant]
     Indication: HYPERTENSION
     Dates: start: 20110201

REACTIONS (9)
  - BLISTER [None]
  - WHITE BLOOD CELL COUNT DECREASED [None]
  - CELLULITIS [None]
  - PAIN IN EXTREMITY [None]
  - WEIGHT INCREASED [None]
  - ERYTHEMA [None]
  - ASCITES [None]
  - DIARRHOEA [None]
  - OEDEMA PERIPHERAL [None]
